FAERS Safety Report 4437278-4 (Version None)
Quarter: 2004Q3

REPORT INFORMATION
  Report Type: 
  Country: None (occurrence: None)
  Receive Date: 20040827
  Receipt Date: 20040817
  Transmission Date: 20050211
  Serious: Yes (Other)
  Sender: FDA-Public Use
  Company Number: K200401280

PATIENT
  Sex: Female

DRUGS (1)
  1. LEVOXYL [Suspect]
     Dosage: 50 MCG, ORAL
     Route: 048
     Dates: start: 20040701

REACTIONS (5)
  - ALOPECIA [None]
  - ANOREXIA [None]
  - FEELING COLD [None]
  - SENSATION OF FOREIGN BODY [None]
  - WEIGHT DECREASED [None]
